FAERS Safety Report 6379590-8 (Version None)
Quarter: 2009Q3

REPORT INFORMATION
  Report Type: 
  Country: None (occurrence: None)
  Receive Date: 20090928
  Receipt Date: 20090924
  Transmission Date: 20100115
  Serious: Yes (Death)
  Sender: FDA-Public Use
  Company Number: IT-WYE-G04500209

PATIENT
  Sex: Female

DRUGS (1)
  1. TORISEL [Suspect]
     Indication: RENAL CANCER
     Dosage: 25 MG
     Route: 042
     Dates: start: 20081216, end: 20090116

REACTIONS (3)
  - HYPERGLYCAEMIA [None]
  - HYPERTRANSAMINASAEMIA [None]
  - LEUKOPENIA [None]
